FAERS Safety Report 8045956-3 (Version None)
Quarter: 2012Q1

REPORT INFORMATION
  Report Type: 
  Country: None (occurrence: None)
  Receive Date: 20120113
  Receipt Date: 20120110
  Transmission Date: 20120608
  Serious: Yes (Other)
  Sender: FDA-Public Use
  Company Number: DE-GLAXOSMITHKLINE-D0073373A

PATIENT
  Sex: Male

DRUGS (1)
  1. TROBALT [Suspect]
     Route: 048

REACTIONS (4)
  - COMMUNICATION DISORDER [None]
  - DRUG INEFFECTIVE [None]
  - APHASIA [None]
  - CONVULSION [None]
